FAERS Safety Report 5520655-8 (Version None)
Quarter: 2007Q4

REPORT INFORMATION
  Report Type: 
  Country: None (occurrence: None)
  Receive Date: 20071119
  Receipt Date: 20071106
  Transmission Date: 20080405
  Serious: Yes (Death)
  Sender: FDA-Public Use
  Company Number: US-PFIZER INC-2007091269

PATIENT
  Sex: Male
  Weight: 86.4 kg

DRUGS (5)
  1. MARAVIROC [Suspect]
     Indication: HIV TEST POSITIVE
     Route: 048
     Dates: start: 20071002, end: 20071026
  2. TMC114 [Concomitant]
     Route: 048
     Dates: start: 20071002, end: 20071026
  3. RITONAVIR [Concomitant]
     Route: 048
     Dates: start: 20051107, end: 20071026
  4. LAMIVUDINE [Concomitant]
     Route: 048
     Dates: start: 20051107, end: 20071026
  5. DAPSONE [Concomitant]
     Route: 048
     Dates: start: 20071009, end: 20071026

REACTIONS (1)
  - CARDIAC ARREST [None]
